FAERS Safety Report 4876020-X (Version None)
Quarter: 2006Q1

REPORT INFORMATION
  Report Type: 
  Country: None (occurrence: None)
  Receive Date: 20060109
  Receipt Date: 20051228
  Transmission Date: 20060701
  Serious: Yes (Hospitalization)
  Sender: FDA-Public Use
  Company Number: FR-SANOFI-SYNTHELABO-A02200503515

PATIENT
  Age: 78 Year
  Sex: Female
  Weight: 73 kg

DRUGS (10)
  1. DEPAMIDE [Suspect]
     Indication: DRUG USE FOR UNKNOWN INDICATION
     Route: 048
     Dates: end: 20051016
  2. ZOLPIDEM TARTRATE [Interacting]
     Indication: DRUG USE FOR UNKNOWN INDICATION
     Route: 048
     Dates: end: 20051022
  3. ANAFRANIL [Interacting]
     Indication: DYSTHYMIC DISORDER
     Route: 048
     Dates: end: 20051016
  4. DEROXAT [Interacting]
     Indication: DYSTHYMIC DISORDER
     Route: 048
     Dates: end: 20051016
  5. ATHYMIL [Interacting]
     Indication: DYSTHYMIC DISORDER
     Dosage: UNK
     Route: 048
     Dates: end: 20051016
  6. KARDEGIC [Concomitant]
     Indication: DRUG USE FOR UNKNOWN INDICATION
     Dosage: UNK
     Route: 048
  7. CORTANCYL [Concomitant]
     Indication: ARTERITIS
     Route: 048
  8. TOPALGIC [Concomitant]
     Indication: DRUG USE FOR UNKNOWN INDICATION
     Dosage: UNK
     Route: 048
  9. DIFFU K [Concomitant]
     Indication: DRUG USE FOR UNKNOWN INDICATION
     Dosage: UNK
     Route: 048
  10. LEVOTHYROXINE SODIUM [Concomitant]
     Indication: DRUG USE FOR UNKNOWN INDICATION
     Dosage: UNK
     Route: 048

REACTIONS (2)
  - DRUG INTERACTION [None]
  - FALL [None]
